FAERS Safety Report 6052747-1 (Version None)
Quarter: 2009Q1

REPORT INFORMATION
  Report Type: 
  Country: None (occurrence: None)
  Receive Date: 20090127
  Receipt Date: 20090121
  Transmission Date: 20090719
  Serious: Yes (Life-Threatening)
  Sender: FDA-Public Use
  Company Number: FR-BRISTOL-MYERS SQUIBB COMPANY-14478127

PATIENT
  Age: 44 Year
  Sex: Female

DRUGS (6)
  1. TAXOL [Suspect]
     Indication: BREAST CANCER METASTATIC
     Dosage: RECEIVED 6 CYCLES
     Route: 042
     Dates: start: 20030101, end: 20050101
  2. CISPLATIN [Suspect]
     Indication: BREAST CANCER
     Dosage: LAST CYCLE IN SEP08
     Dates: start: 20080901
  3. HERCEPTIN [Suspect]
     Indication: BREAST CANCER METASTATIC
     Dosage: 6 CYCLES WEEKLY THEN EVERY 3 WEEKS
     Route: 042
     Dates: start: 20050101
  4. CARBOPLATIN [Suspect]
     Indication: METASTASES TO CENTRAL NERVOUS SYSTEM
     Dosage: STARTED IN 2005
     Route: 042
     Dates: start: 20080901, end: 20080901
  5. FLUOROURACIL [Suspect]
     Indication: METASTASES TO CENTRAL NERVOUS SYSTEM
     Dosage: START IN 2005
     Route: 042
     Dates: start: 20080901, end: 20080901
  6. VEPESID [Suspect]
     Indication: METASTASES TO CENTRAL NERVOUS SYSTEM
     Route: 048
     Dates: start: 20070101

REACTIONS (1)
  - ACUTE MYELOID LEUKAEMIA [None]
